FAERS Safety Report 21897513 (Version 1)
Quarter: 2023Q1

REPORT INFORMATION
  Report Type: Spontaneous
  Country: US (occurrence: None)
  Receive Date: 20230120
  Receipt Date: 20230120
  Transmission Date: 20230417
  Serious: Yes (Hospitalization)
  Sender: FDA-Public Use
  Company Number: None

PATIENT
  Sex: Female

DRUGS (11)
  1. DUPIXENT [Suspect]
     Active Substance: DUPILUMAB
     Indication: Asthma
     Dosage: FREQUENCY : AS DIRECTED;?RX1: INJECT 2 PENS (600MG) UNDER THE SKIN (SUBCUTANEOUS INJECTION) ON DAY 1
     Route: 058
  2. ADVAIR HFA AER [Concomitant]
  3. ALBUTEROL AER HFA [Concomitant]
  4. AZELASTINE [Concomitant]
     Active Substance: AZELASTINE
  5. FERROUS SULFATE [Concomitant]
     Active Substance: FERROUS SULFATE
  6. FLONASE ALGY [Concomitant]
  7. NIACIN [Concomitant]
     Active Substance: NIACIN
  8. PRILOSEC OTC [Concomitant]
     Active Substance: OMEPRAZOLE MAGNESIUM
  9. SINGULAIR [Concomitant]
     Active Substance: MONTELUKAST SODIUM
  10. TRAZODONE [Concomitant]
     Active Substance: TRAZODONE HYDROCHLORIDE
  11. ZYRTEC ALLGY [Concomitant]

REACTIONS (1)
  - Hospitalisation [None]
